FAERS Safety Report 19426774 (Version 2)
Quarter: 2022Q4

REPORT INFORMATION
  Report Type: Spontaneous
  Country: FR (occurrence: FR)
  Receive Date: 20210617
  Receipt Date: 20221209
  Transmission Date: 20230112
  Serious: Yes (Hospitalization, Other)
  Sender: FDA-Public Use
  Company Number: None

PATIENT
  Age: 68 Year
  Sex: Female

DRUGS (1)
  1. OPDIVO [Suspect]
     Active Substance: NIVOLUMAB
     Indication: Malignant melanoma stage III
     Dosage: 480 MILLIGRAM, Q4WK
     Route: 041
     Dates: start: 20210108, end: 20210402

REACTIONS (2)
  - Retinal vasculitis [Recovered/Resolved with Sequelae]
  - Uveitis [Recovering/Resolving]

NARRATIVE: CASE EVENT DATE: 20210427
